FAERS Safety Report 14724087 (Version 4)
Quarter: 2018Q3

REPORT INFORMATION
  Report Type: Report from Study
  Country: US (occurrence: US)
  Receive Date: 20180405
  Receipt Date: 20180719
  Transmission Date: 20181010
  Serious: Yes (Other)
  Sender: FDA-Public Use
  Company Number: US-ACTELION-A-NJ2018-169982

PATIENT
  Age: 68 Year
  Sex: Female

DRUGS (1)
  1. OPSUMIT [Suspect]
     Active Substance: MACITENTAN
     Indication: PULMONARY ARTERIAL HYPERTENSION
     Dosage: UNK
     Route: 048
     Dates: start: 20180205

REACTIONS (7)
  - Vision blurred [Not Recovered/Not Resolved]
  - Intra-abdominal fluid collection [Unknown]
  - Palpitations [Not Recovered/Not Resolved]
  - Hepatic cirrhosis [Unknown]
  - Paraesthesia [Not Recovered/Not Resolved]
  - Non-alcoholic fatty liver [Unknown]
  - Chest discomfort [Unknown]

NARRATIVE: CASE EVENT DATE: 2018
